FAERS Safety Report 8963778 (Version 4)
Quarter: 2016Q3

REPORT INFORMATION
  Report Type: Spontaneous
  Country: US (occurrence: US)
  Receive Date: 20121213
  Receipt Date: 20160807
  Transmission Date: 20161109
  Serious: Yes (Hospitalization, Other)
  Sender: FDA-Public Use
  Company Number: US-009507513-1212USA004742

PATIENT
  Sex: Female

DRUGS (6)
  1. FOSAMAX PLUS D [Suspect]
     Active Substance: ALENDRONATE SODIUM\CHOLECALCIFEROL
     Indication: OSTEOPOROSIS
     Dosage: 70MG-2,800
     Route: 048
     Dates: start: 200701, end: 201003
  2. ALENDRONATE SODIUM. [Suspect]
     Active Substance: ALENDRONATE SODIUM
     Indication: OSTEOPOROSIS
     Dosage: 70 MG, UNK
     Route: 048
     Dates: start: 20091214
  3. PREDNISONE. [Concomitant]
     Active Substance: PREDNISONE
     Dosage: INTERMITTENTLY
     Dates: start: 2000, end: 2011
  4. ALENDRONATE SODIUM. [Suspect]
     Active Substance: ALENDRONATE SODIUM
     Indication: OSTEOPOROSIS
     Dosage: 70 MG, UNK
     Route: 048
     Dates: start: 20050502, end: 20061109
  5. FOSAMAX [Suspect]
     Active Substance: ALENDRONATE SODIUM
     Indication: OSTEOPOROSIS
     Dosage: 70 MG, QW
     Route: 048
     Dates: start: 200207, end: 200612
  6. DIDRONEL [Concomitant]
     Active Substance: ETIDRONATE DISODIUM
     Indication: OSTEOPOROSIS
     Dosage: UNK
     Route: 048
     Dates: start: 2001, end: 2002

REACTIONS (24)
  - Knee arthroplasty [Recovered/Resolved]
  - Pulmonary mass [Unknown]
  - Bronchitis [Unknown]
  - Deep vein thrombosis [Recovered/Resolved]
  - Depression [Unknown]
  - Intramedullary rod insertion [Unknown]
  - Therapeutic embolisation [Recovered/Resolved]
  - Biopsy bone [Unknown]
  - Parkinson^s disease [Not Recovered/Not Resolved]
  - Synovial cyst [Unknown]
  - Hypertension [Unknown]
  - Kyphosis [Unknown]
  - Femur fracture [Unknown]
  - Spinal compression fracture [Unknown]
  - Echocardiogram abnormal [Unknown]
  - Body height decreased [Unknown]
  - Vertebroplasty [Unknown]
  - Appendicectomy [Recovered/Resolved]
  - Dyslipidaemia [Unknown]
  - Retroperitoneal haematoma [Recovered/Resolved]
  - Arterial haemorrhage [Unknown]
  - Pain in extremity [Unknown]
  - Hysterectomy [Unknown]
  - Atrial fibrillation [Unknown]

NARRATIVE: CASE EVENT DATE: 2005
